FAERS Safety Report 14276836 (Version 1)
Quarter: 2017Q4

REPORT INFORMATION
  Report Type: Spontaneous
  Country: FR (occurrence: FR)
  Receive Date: 20171211
  Receipt Date: 20171211
  Transmission Date: 20180321
  Serious: Yes (Hospitalization)
  Sender: FDA-Public Use
  Company Number: FR-OTSUKA-2015_015117

PATIENT
  Age: 27 Year
  Sex: Male

DRUGS (7)
  1. RISPERDAL [Suspect]
     Active Substance: RISPERIDONE
     Indication: BIPOLAR DISORDER
     Dosage: 1 MG, QD
     Route: 048
     Dates: end: 20151102
  2. LOXAPAC [Suspect]
     Active Substance: LOXAPINE SUCCINATE
     Indication: MANIA
     Dosage: 100 MG, QD
     Route: 048
     Dates: start: 20151102, end: 20151102
  3. ABILIFY [Suspect]
     Active Substance: ARIPIPRAZOLE
     Indication: MANIA
     Dosage: 15 MG, QD
     Route: 048
     Dates: start: 20151102, end: 20151102
  4. LEVOMEPROMAZINE [Suspect]
     Active Substance: LEVOMEPROMAZINE
     Indication: MANIA
     Dosage: 1 DF, QID
     Route: 048
     Dates: start: 20151102, end: 20151102
  5. DEPAKOTE [Suspect]
     Active Substance: DIVALPROEX SODIUM
     Indication: BIPOLAR DISORDER
     Dosage: 250 MG, BID
     Route: 048
  6. RISPERIDONE. [Suspect]
     Active Substance: RISPERIDONE
     Indication: BIPOLAR DISORDER
     Dosage: 1 MG, QD
     Route: 048
     Dates: end: 20151102
  7. NOZINAN [Suspect]
     Active Substance: LEVOMEPROMAZINE
     Indication: MANIA
     Dosage: 1 DF, QID
     Route: 048
     Dates: start: 20151102, end: 20151102

REACTIONS (2)
  - Hyperthermia [Unknown]
  - Extrapyramidal disorder [Unknown]

NARRATIVE: CASE EVENT DATE: 20151102
